FAERS Safety Report 14770536 (Version 2)
Quarter: 2018Q2

REPORT INFORMATION
  Report Type: Spontaneous
  Country: DE (occurrence: DE)
  Receive Date: 20180417
  Receipt Date: 20180621
  Transmission Date: 20180711
  Serious: Yes (Life-Threatening, Hospitalization, Disabling)
  Sender: FDA-Public Use
  Company Number: DE-PFIZER INC-2018155390

PATIENT
  Age: 63 Year
  Sex: Male
  Weight: 83 kg

DRUGS (2)
  1. PANTOPRAZOL [Concomitant]
     Active Substance: PANTOPRAZOLE SODIUM
     Dosage: 20 MG, EVERY DAY
     Route: 048
  2. LYRICA [Suspect]
     Active Substance: PREGABALIN
     Indication: SPINA BIFIDA
     Dosage: 150 MG 4-6 TIMES DAILY
     Route: 048

REACTIONS (7)
  - Interstitial lung disease [Unknown]
  - Emphysema [Unknown]
  - Drug reaction with eosinophilia and systemic symptoms [Unknown]
  - PO2 decreased [Unknown]
  - Prescribed overdose [Unknown]
  - Alveolitis [Unknown]
  - Product use issue [Unknown]

NARRATIVE: CASE EVENT DATE: 20170823
